FAERS Safety Report 4834591-3 (Version None)
Quarter: 2005Q4

REPORT INFORMATION
  Report Type: 
  Country: None (occurrence: None)
  Receive Date: 20051122
  Receipt Date: 20051112
  Transmission Date: 20060501
  Serious: Yes (Hospitalization)
  Sender: FDA-Public Use
  Company Number: 2005UW17591

PATIENT
  Sex: Male
  Weight: 98.2 kg

DRUGS (10)
  1. IRESSA [Suspect]
     Indication: OESOPHAGEAL CARCINOMA
     Route: 048
     Dates: start: 20050926
  2. CISPLATIN [Suspect]
     Indication: OESOPHAGEAL CARCINOMA
     Route: 042
     Dates: start: 20051017
  3. CISPLATIN [Suspect]
     Route: 042
     Dates: start: 20051024
  4. CISPLATIN [Suspect]
     Route: 042
     Dates: start: 20051031
  5. CISPLATIN [Suspect]
     Route: 042
     Dates: start: 20051107
  6. IRINOTECAN [Suspect]
     Indication: OESOPHAGEAL CARCINOMA
     Route: 042
     Dates: start: 20051017
  7. IRINOTECAN [Suspect]
     Route: 042
     Dates: start: 20051024
  8. IRINOTECAN [Suspect]
     Route: 042
     Dates: start: 20051031
  9. IRINOTECAN [Suspect]
     Route: 042
     Dates: start: 20051107
  10. RADIATION THERAPY [Suspect]
     Indication: OESOPHAGEAL CARCINOMA
     Dosage: 5 DAYS A WEEK
     Dates: start: 20051017

REACTIONS (1)
  - FEBRILE NEUTROPENIA [None]
